FAERS Safety Report 5395434-5 (Version None)
Quarter: 2007Q3

REPORT INFORMATION
  Report Type: 
  Country: None (occurrence: None)
  Receive Date: 20070724
  Receipt Date: 20070717
  Transmission Date: 20080115
  Serious: Yes (Death, Life-Threatening, Other)
  Sender: FDA-Public Use
  Company Number: HQWYE113118JUL07

PATIENT
  Sex: Male
  Weight: 68 kg

DRUGS (6)
  1. MYLOTARG [Suspect]
     Indication: ACUTE MYELOID LEUKAEMIA RECURRENT
     Route: 041
     Dates: start: 20070613, end: 20070613
  2. PREDONINE [Concomitant]
     Route: 041
     Dates: start: 20070615, end: 20070615
  3. PREDONINE [Concomitant]
     Route: 041
     Dates: start: 20070616, end: 20070616
  4. PREDONINE [Concomitant]
     Route: 041
     Dates: start: 20070617, end: 20070617
  5. PREDONINE [Concomitant]
     Route: 041
     Dates: start: 20070618, end: 20070618
  6. SELBEX [Concomitant]
     Indication: PROPHYLAXIS
     Route: 048
     Dates: start: 20070612, end: 20070624

REACTIONS (6)
  - CONDITION AGGRAVATED [None]
  - LIVER DISORDER [None]
  - NEUTROPENIA [None]
  - PLATELET COUNT DECREASED [None]
  - PNEUMOCYSTIS JIROVECI PNEUMONIA [None]
  - PNEUMONIA [None]
